FAERS Safety Report 8446361 (Version 5)
Quarter: 2013Q2

REPORT INFORMATION
  Report Type: Spontaneous
  Country: US (occurrence: US)
  Receive Date: 20120307
  Receipt Date: 20130531
  Transmission Date: 20140414
  Serious: No
  Sender: FDA-Public Use
  Company Number: US-ASTRAZENECA-2010SE05518

PATIENT
  Age: 68 Year
  Sex: Female
  Weight: 56.7 kg

DRUGS (16)
  1. ZOMIG [Suspect]
     Indication: MIGRAINE
     Route: 048
     Dates: start: 2000
  2. ZOMIG [Suspect]
     Indication: HEADACHE
     Route: 048
     Dates: start: 2000
  3. ZOMIG [Suspect]
     Indication: MIGRAINE
     Route: 048
  4. ZOMIG [Suspect]
     Indication: HEADACHE
     Route: 048
  5. ZOMIG [Suspect]
     Indication: MIGRAINE
     Route: 048
  6. ZOMIG [Suspect]
     Indication: HEADACHE
     Route: 048
  7. ZOMIG [Suspect]
     Indication: MIGRAINE
     Route: 048
  8. ZOMIG [Suspect]
     Indication: HEADACHE
     Route: 048
  9. ZOMIG [Suspect]
     Indication: MIGRAINE
     Route: 048
  10. ZOMIG [Suspect]
     Indication: HEADACHE
     Route: 048
  11. ZOMIG [Suspect]
     Indication: MIGRAINE
     Route: 048
  12. ZOMIG [Suspect]
     Indication: HEADACHE
     Route: 048
  13. ZOMIG [Suspect]
     Indication: MIGRAINE
     Route: 048
  14. ZOMIG [Suspect]
     Indication: HEADACHE
     Route: 048
  15. COMPOUNDED NATURAL FEMALE HORMONE [Concomitant]
     Route: 050
  16. METHINAZOL [Concomitant]
     Indication: HYPERTHYROIDISM
     Route: 048

REACTIONS (11)
  - Hyperthyroidism [Unknown]
  - Feeling abnormal [Unknown]
  - Drug intolerance [Unknown]
  - Malaise [Unknown]
  - Cough [Unknown]
  - Pulmonary congestion [Unknown]
  - Viral infection [Unknown]
  - Headache [Unknown]
  - Drug hypersensitivity [Unknown]
  - Intentional drug misuse [Unknown]
  - Drug ineffective [Unknown]
